FAERS Safety Report 7788801-3 (Version None)
Quarter: 2011Q3

REPORT INFORMATION
  Report Type: 
  Country: None (occurrence: None)
  Receive Date: 20110930
  Receipt Date: 20110920
  Transmission Date: 20111222
  Serious: Yes (Hospitalization)
  Sender: FDA-Public Use
  Company Number: JP-ABBOTT-10P-087-0641596-00

PATIENT
  Sex: Female
  Weight: 48.9 kg

DRUGS (9)
  1. HUMIRA [Suspect]
     Indication: COLITIS ULCERATIVE
     Route: 058
     Dates: start: 20090409, end: 20090409
  2. HUMIRA [Suspect]
     Route: 058
     Dates: start: 20090618, end: 20090618
  3. LAC B [Concomitant]
     Indication: COLITIS ULCERATIVE
     Route: 048
     Dates: start: 20080520
  4. HUMIRA [Suspect]
     Route: 058
     Dates: start: 20090509, end: 20090604
  5. SULFASALAZINE [Concomitant]
     Indication: COLITIS ULCERATIVE
     Route: 048
     Dates: start: 20080618
  6. CEREKINON [Concomitant]
     Indication: COLITIS ULCERATIVE
     Route: 048
     Dates: start: 20080618
  7. HUMIRA [Suspect]
     Route: 058
     Dates: start: 20090702, end: 20090702
  8. HUMIRA [Suspect]
     Route: 058
     Dates: start: 20090716, end: 20100422
  9. HUMIRA [Suspect]
     Route: 058
     Dates: start: 20090422, end: 20090422

REACTIONS (1)
  - COLITIS ULCERATIVE [None]
